FAERS Safety Report 7290167-2 (Version None)
Quarter: 2011Q1

REPORT INFORMATION
  Report Type: 
  Country: None (occurrence: None)
  Receive Date: 20110214
  Receipt Date: 20110203
  Transmission Date: 20110831
  Serious: Yes (Other)
  Sender: FDA-Public Use
  Company Number: PHHY2011DE03601

PATIENT
  Sex: Female

DRUGS (3)
  1. CO-DIOVAN [Suspect]
     Dosage: 80/12.5 MG
     Dates: start: 20080101, end: 20100101
  2. CO-DIOVAN [Suspect]
     Dosage: UNK
     Dates: start: 20110101
  3. ZYRTEC [Concomitant]
     Dosage: UNK

REACTIONS (8)
  - NAIL DISCOLOURATION [None]
  - ROTATOR CUFF SYNDROME [None]
  - ARTHRITIS [None]
  - JOINT RANGE OF MOTION DECREASED [None]
  - EFFUSION [None]
  - ONYCHOCLASIS [None]
  - ECZEMA [None]
  - MUSCULOSKELETAL PAIN [None]
